FAERS Safety Report 5781946-9 (Version None)
Quarter: 2008Q2

REPORT INFORMATION
  Report Type: 
  Country: None (occurrence: None)
  Receive Date: 20080623
  Receipt Date: 20080619
  Transmission Date: 20081010
  Serious: Yes (Hospitalization)
  Sender: FDA-Public Use
  Company Number: B0525829A

PATIENT
  Age: 1 Month
  Sex: Male
  Weight: 2 kg

DRUGS (1)
  1. RETROVIR [Suspect]
     Indication: ANTIVIRAL PROPHYLAXIS
     Dosage: .12ML TWICE PER DAY
     Route: 048
     Dates: start: 20080322, end: 20080424

REACTIONS (5)
  - BRADYCARDIA [None]
  - COLITIS ULCERATIVE [None]
  - GENERAL PHYSICAL HEALTH DETERIORATION [None]
  - NECROTISING ENTEROCOLITIS NEONATAL [None]
  - RECTAL HAEMORRHAGE [None]
